FAERS Safety Report 21802091 (Version 1)
Quarter: 2022Q4

REPORT INFORMATION
  Report Type: Report from Study
  Country: US (occurrence: US)
  Receive Date: 20221230
  Receipt Date: 20221230
  Transmission Date: 20230112
  Serious: No
  Sender: FDA-Public Use
  Company Number: US-ACORDA-ACO_172671_2022

PATIENT
  Age: 81 Year
  Sex: Female

DRUGS (3)
  1. INBRIJA [Suspect]
     Active Substance: LEVODOPA
     Indication: Parkinson^s disease
     Dosage: 2 DOSAGE FORM (84 MG), PRN, NOT TO EXCEED 5 DOSES A DAY
     Dates: start: 20220501
  2. INBRIJA [Suspect]
     Active Substance: LEVODOPA
     Indication: On and off phenomenon
  3. SINEMET [Concomitant]
     Active Substance: CARBIDOPA\LEVODOPA
     Indication: Product used for unknown indication
     Dosage: 1 DOSAGE FORM (25/100 MG), QID
     Route: 065

REACTIONS (6)
  - Respiratory disorder [Not Recovered/Not Resolved]
  - Incorrect dose administered by device [Unknown]
  - Product physical issue [Unknown]
  - Gastrooesophageal reflux disease [Not Recovered/Not Resolved]
  - Device issue [Unknown]
  - Wrong technique in device usage process [Unknown]

NARRATIVE: CASE EVENT DATE: 20220501
